FAERS Safety Report 12634306 (Version 4)
Quarter: 2017Q3

REPORT INFORMATION
  Report Type: Spontaneous
  Country: US (occurrence: US)
  Receive Date: 20160809
  Receipt Date: 20170713
  Transmission Date: 20171127
  Serious: Yes (Other)
  Sender: FDA-Public Use
  Company Number: US-WEST-WARD PHARMACEUTICALS CORP.-US-H14001-16-01425

PATIENT
  Age: 64 Year
  Sex: Female

DRUGS (3)
  1. LETROZOLE. [Suspect]
     Active Substance: LETROZOLE
     Route: 048
  2. IBRANCE [Concomitant]
     Active Substance: PALBOCICLIB
     Indication: METASTASES TO BONE
     Route: 065
     Dates: start: 201510
  3. LETROZOLE. [Suspect]
     Active Substance: LETROZOLE
     Indication: METASTASES TO BONE
     Route: 048
     Dates: start: 201510, end: 201605

REACTIONS (13)
  - Asthenia [Recovered/Resolved]
  - Pain [Not Recovered/Not Resolved]
  - Diarrhoea [Recovered/Resolved]
  - Muscle spasms [Not Recovered/Not Resolved]
  - Pyrexia [Recovered/Resolved]
  - Fatigue [Recovered/Resolved]
  - Vision blurred [Not Recovered/Not Resolved]
  - Constipation [Unknown]
  - Pulmonary pain [Recovered/Resolved]
  - Diplopia [Not Recovered/Not Resolved]
  - Withdrawal syndrome [Recovered/Resolved]
  - Eye movement disorder [Not Recovered/Not Resolved]
  - Headache [Recovered/Resolved]

NARRATIVE: CASE EVENT DATE: 201605
